FAERS Safety Report 8808707 (Version 2)
Quarter: 2012Q4

REPORT INFORMATION
  Report Type: Report from Study
  Country: CA (occurrence: CA)
  Receive Date: 20120926
  Receipt Date: 20120928
  Transmission Date: 20130627
  Serious: Yes (Hospitalization, Other)
  Sender: FDA-Public Use
  Company Number: CA-JNJFOC-20120908365

PATIENT
  Age: 81 Year
  Sex: Male
  Weight: 82 kg

DRUGS (3)
  1. REMICADE [Suspect]
     Indication: COLITIS ULCERATIVE
     Dosage: 1st loading dose
     Route: 042
     Dates: start: 20120906, end: 20120919
  2. PREDNISONE [Concomitant]
     Route: 048
  3. MEZAVANT [Concomitant]
     Dosage: 4 tablets
     Route: 048

REACTIONS (2)
  - Compression fracture [Not Recovered/Not Resolved]
  - Infection [Not Recovered/Not Resolved]
